FAERS Safety Report 9779630 (Version 1)
Quarter: 2013Q4

REPORT INFORMATION
  Report Type: Report from Study
  Country: US (occurrence: US)
  Receive Date: 20131223
  Receipt Date: 20131223
  Transmission Date: 20140711
  Serious: Yes (Hospitalization)
  Sender: FDA-Public Use
  Company Number: US-PURDUE-USA-2013-0109654

PATIENT
  Age: 52 Year
  Sex: Female

DRUGS (2)
  1. OXY CR TAB [Suspect]
     Indication: BACK PAIN
     Dosage: UNK
     Route: 048
     Dates: start: 1996
  2. OXY CR TAB [Suspect]
     Indication: INTERVERTEBRAL DISC DEGENERATION
     Dosage: 240 MG, Q12H
     Route: 048
     Dates: start: 20131127

REACTIONS (2)
  - Blood potassium decreased [Recovered/Resolved]
  - Dehydration [Recovered/Resolved]
